FAERS Safety Report 6496640-9 (Version None)
Quarter: 2009Q4

REPORT INFORMATION
  Report Type: 
  Country: None (occurrence: None)
  Receive Date: 20091210
  Receipt Date: 20091120
  Transmission Date: 20100525
  Serious: Yes (Life-Threatening, Hospitalization)
  Sender: FDA-Public Use
  Company Number: 000516

PATIENT
  Age: 65 Year
  Sex: Male
  Weight: 70 kg

DRUGS (5)
  1. PROSTAVASIN /00501501/ (PROSTAVASINE) [Suspect]
     Indication: ARTERIAL OCCLUSIVE DISEASE
     Dosage: (2 X 2 VIALS OF 20?G INTRAVENOUS (NOT OTHERWISE SPECIFIED)
     Route: 042
  2. TRAMADOL HCL [Concomitant]
  3. ADALAT [Concomitant]
  4. ISOSORBIDE MONONITRATE [Concomitant]
  5. GLIBENCLAMIDE [Concomitant]

REACTIONS (4)
  - LIVER INJURY [None]
  - PULMONARY OEDEMA [None]
  - PULMONARY TOXICITY [None]
  - SHOCK [None]
